FAERS Safety Report 6583985-7 (Version None)
Quarter: 2010Q1

REPORT INFORMATION
  Report Type: 
  Country: None (occurrence: None)
  Receive Date: 20100216
  Receipt Date: 20091216
  Transmission Date: 20100710
  Serious: No
  Sender: FDA-Public Use
  Company Number: US-ABBOTT-09P-163-0615690-00

PATIENT
  Sex: Female

DRUGS (2)
  1. SIMCOR [Suspect]
     Indication: DRUG USE FOR UNKNOWN INDICATION
     Dosage: 500MG/20MG ONCE DAILY
     Route: 048
     Dates: start: 20091201
  2. SIMCOR [Suspect]
     Dosage: 1000MG/20MG ONCE DAILY
     Route: 048

REACTIONS (1)
  - EXPIRED DRUG ADMINISTERED [None]
